FAERS Safety Report 5808595-8 (Version None)
Quarter: 2008Q3

REPORT INFORMATION
  Report Type: 
  Country: None (occurrence: None)
  Receive Date: 20080714
  Receipt Date: 20080703
  Transmission Date: 20090109
  Serious: Yes (Disabling, Other)
  Sender: FDA-Public Use
  Company Number: HK-AMGEN-US285264

PATIENT
  Sex: Female

DRUGS (12)
  1. ARANESP [Suspect]
     Indication: RENAL FAILURE CHRONIC
     Route: 058
     Dates: start: 20041201
  2. ADALAT - SLOW RELEASE [Concomitant]
     Route: 065
     Dates: start: 20060910
  3. SENOKOT [Concomitant]
     Route: 065
     Dates: start: 20080505
  4. BETALOC [Concomitant]
     Route: 065
     Dates: start: 20040921
  5. SLOW-K [Concomitant]
     Route: 065
     Dates: start: 20040521
  6. ATORVASTATIN CALCIUM [Concomitant]
     Route: 065
     Dates: start: 20040521
  7. FOLIC ACID [Concomitant]
     Route: 065
     Dates: start: 20050322
  8. LASIX [Concomitant]
     Route: 065
     Dates: start: 20040521
  9. ROSIGLITAZONE [Concomitant]
     Route: 065
     Dates: start: 20070110
  10. GENTAMICIN [Concomitant]
     Route: 061
     Dates: start: 20070404
  11. AQUEOUS CREAM [Concomitant]
     Route: 061
     Dates: start: 20070922
  12. PEPCIDIN [Concomitant]
     Route: 065
     Dates: start: 20050803

REACTIONS (2)
  - APLASTIC ANAEMIA [None]
  - HAEMOGLOBIN DECREASED [None]
